FAERS Safety Report 8986307 (Version 1)
Quarter: 2012Q4

REPORT INFORMATION
  Report Type: Spontaneous
  Country: DE (occurrence: None)
  Receive Date: 20121217
  Receipt Date: 20121217
  Transmission Date: 20130627
  Serious: Yes (Other)
  Sender: FDA-Public Use
  Company Number: POMP-1002651

PATIENT
  Sex: Male

DRUGS (1)
  1. MYOZYME [Suspect]
     Route: 064

REACTIONS (2)
  - Respiratory disorder [None]
  - Maternal drugs affecting foetus [None]
